FAERS Safety Report 4618862-1 (Version None)
Quarter: 2005Q1

REPORT INFORMATION
  Report Type: 
  Country: None (occurrence: None)
  Receive Date: 20050323
  Receipt Date: 20050310
  Transmission Date: 20050727
  Serious: Yes (Other)
  Sender: FDA-Public Use
  Company Number: 2005039717

PATIENT
  Age: 69 Year
  Sex: Female
  Weight: 90.7194 kg

DRUGS (9)
  1. CELEBREX [Suspect]
     Indication: ARTHRITIS
     Dosage: 400 MG (200 MG, 2 IN 1 D), ORAL
     Route: 048
  2. ATORVASTATIN (ATORVASTATIN) [Concomitant]
  3. LEVOTHYROXINE SODIUM [Concomitant]
  4. HYDROCHLOROTHIAZIDE [Concomitant]
  5. CLONIDINE [Concomitant]
  6. LETROZOLE (LETROZOLE) [Concomitant]
  7. LOSARTAN POTASSIUM [Concomitant]
  8. GLIMEPIRIDE [Concomitant]
  9. FUROSEMIDE [Concomitant]

REACTIONS (2)
  - MEDICATION ERROR [None]
  - PAIN [None]
